FAERS Safety Report 12127371 (Version 1)
Quarter: 2016Q1

REPORT INFORMATION
  Report Type: Report from Study
  Country: US (occurrence: US)
  Receive Date: 20160229
  Receipt Date: 20160229
  Transmission Date: 20160526
  Serious: Yes (Hospitalization)
  Sender: FDA-Public Use
  Company Number: PHHO2009US14982

PATIENT
  Age: 78 Year
  Sex: Female
  Weight: 52.3 kg

DRUGS (6)
  1. EPIRUBICIN [Suspect]
     Active Substance: EPIRUBICIN
     Indication: METASTATIC MALIGNANT MELANOMA
  2. FARYDAK [Suspect]
     Active Substance: PANOBINOSTAT
     Indication: METASTATIC MALIGNANT MELANOMA
     Dosage: 30 MG, DAYS 1, 3, 5
     Route: 048
     Dates: start: 20091120, end: 20091124
  3. NEURONTIN [Concomitant]
     Active Substance: GABAPENTIN
  4. AMBIEN [Concomitant]
     Active Substance: ZOLPIDEM TARTRATE
  5. FOSAMAX [Concomitant]
     Active Substance: ALENDRONATE SODIUM
  6. VICODIN [Concomitant]
     Active Substance: ACETAMINOPHEN\HYDROCODONE BITARTRATE

REACTIONS (2)
  - Atrial flutter [Unknown]
  - Atrial fibrillation [Recovered/Resolved]

NARRATIVE: CASE EVENT DATE: 20091124
